FAERS Safety Report 8307704-9 (Version None)
Quarter: 2012Q2

REPORT INFORMATION
  Report Type: 
  Country: None (occurrence: None)
  Receive Date: 20120424
  Receipt Date: 20120419
  Transmission Date: 20120825
  Serious: Yes (Other)
  Sender: FDA-Public Use
  Company Number: US-TEVA-315808USA

PATIENT
  Sex: Female

DRUGS (2)
  1. CLARAVIS [Suspect]
     Dosage: 60 MILLIGRAM;
     Route: 048
     Dates: start: 20110721, end: 20111012
  2. CLARAVIS [Suspect]
     Dosage: 20 MILLIGRAM;
     Route: 048
     Dates: start: 20110901, end: 20111012

REACTIONS (5)
  - ALANINE AMINOTRANSFERASE INCREASED [None]
  - MATERNAL EXPOSURE BEFORE PREGNANCY [None]
  - UNINTENDED PREGNANCY [None]
  - HEADACHE [None]
  - TREATMENT NONCOMPLIANCE [None]
